FAERS Safety Report 5165484-2 (Version None)
Quarter: 2006Q4

REPORT INFORMATION
  Report Type: 
  Country: None (occurrence: None)
  Receive Date: 20061206
  Receipt Date: 20061206
  Transmission Date: 20070319
  Serious: Yes (Death)
  Sender: FDA-Public Use
  Company Number: None

PATIENT
  Age: 3 Month
  Sex: Male
  Weight: 3.6288 kg

DRUGS (1)
  1. PSEUDOEPHEDRINE HCL [Suspect]

REACTIONS (3)
  - ANOXIC ENCEPHALOPATHY [None]
  - DRUG TOXICITY [None]
  - LOWER LIMB FRACTURE [None]
